FAERS Safety Report 13461377 (Version 1)
Quarter: 2017Q2

REPORT INFORMATION
  Report Type: Spontaneous
  Country: US (occurrence: US)
  Receive Date: 20170419
  Receipt Date: 20170419
  Transmission Date: 20170830
  Serious: Yes (Life-Threatening, Hospitalization, Disabling)
  Sender: FDA-Public Use
  Company Number: None

PATIENT
  Age: 41 Year
  Sex: Male
  Weight: 81 kg

DRUGS (5)
  1. MULTI VITAMINS [Concomitant]
     Active Substance: VITAMINS
  2. PAIN MGMT [Concomitant]
  3. STELARA [Suspect]
     Active Substance: USTEKINUMAB
     Indication: AUTOIMMUNE DISORDER
     Dosage: ?          OTHER FREQUENCY:VARIABLE;?
     Route: 030
     Dates: start: 20080401, end: 20090301
  4. HIGH BLOOD PRESSURE MEDS [Concomitant]
  5. VITAMINS [Concomitant]
     Active Substance: VITAMINS

REACTIONS (9)
  - Dehydration [None]
  - Pyrexia [None]
  - Cardiac disorder [None]
  - Skin disorder [None]
  - Blood pressure increased [None]
  - Infection [None]
  - Skin exfoliation [None]
  - Heart rate increased [None]
  - Adverse event [None]

NARRATIVE: CASE EVENT DATE: 20090401
